FAERS Safety Report 7463063-5 (Version None)
Quarter: 2011Q2

REPORT INFORMATION
  Report Type: 
  Country: None (occurrence: None)
  Receive Date: 20110506
  Receipt Date: 20110407
  Transmission Date: 20111010
  Serious: Yes (Other)
  Sender: FDA-Public Use
  Company Number: DE-BAYER-2011-026793

PATIENT
  Age: 65 Year
  Sex: Female
  Weight: 62 kg

DRUGS (2)
  1. BETAFERON [Suspect]
     Indication: MULTIPLE SCLEROSIS
     Dosage: 1 ML, UNK
     Route: 058
     Dates: start: 20040801, end: 20110208
  2. IBUPROFEN [Concomitant]
     Dosage: UNK
     Dates: end: 20110121

REACTIONS (4)
  - ALANINE AMINOTRANSFERASE INCREASED [None]
  - GAMMA-GLUTAMYLTRANSFERASE INCREASED [None]
  - MUSCLE SPASTICITY [None]
  - ASPARTATE AMINOTRANSFERASE INCREASED [None]
